FAERS Safety Report 9064076 (Version 2)
Quarter: 2013Q1

REPORT INFORMATION
  Report Type: Spontaneous
  Country: GR (occurrence: GR)
  Receive Date: 20130128
  Receipt Date: 20130305
  Transmission Date: 20140127
  Serious: Yes (Other)
  Sender: FDA-Public Use
  Company Number: GR-JNJFOC-20130110637

PATIENT
  Sex: Male

DRUGS (1)
  1. STELARA [Suspect]
     Indication: PSORIASIS
     Dosage: TREATED FOR THE PAST 1.5 YEAR PRIOR TO THE REPORT
     Route: 058

REACTIONS (1)
  - Latent tuberculosis [Unknown]
